FAERS Safety Report 9854710 (Version 1)
Quarter: 2020Q3

REPORT INFORMATION
  Report Type: Spontaneous
  Country: GR (occurrence: GR)
  Receive Date: 20140130
  Receipt Date: 20140130
  Transmission Date: 20201104
  Serious: Yes (Other)
  Sender: FDA-Public Use
  Company Number: GR-ROCHE-1337373

PATIENT
  Age: 84 Year
  Sex: Female

DRUGS (2)
  1. IBANDRONIC ACID. [Suspect]
     Active Substance: IBANDRONIC ACID
     Indication: OSTEOPOROSIS POSTMENOPAUSAL
     Route: 065
  2. ALENDRONATE [Suspect]
     Active Substance: ALENDRONATE SODIUM
     Indication: OSTEOPOROSIS POSTMENOPAUSAL
     Route: 065

REACTIONS (4)
  - Bone pain [Recovered/Resolved]
  - Femur fracture [Recovered/Resolved]
  - Atypical femur fracture [Recovered/Resolved]
  - Bone disorder [Recovered/Resolved]
